FAERS Safety Report 9909413 (Version 1)
Quarter: 2014Q1

REPORT INFORMATION
  Report Type: Spontaneous
  Country: SE (occurrence: None)
  Receive Date: 20140212
  Receipt Date: 20140212
  Transmission Date: 20141002
  Serious: Yes (Death)
  Sender: FDA-Public Use
  Company Number: 2014P1000990

PATIENT
  Age: 55 Year
  Sex: Female

DRUGS (6)
  1. CITALOPRAM [Suspect]
  2. NORDAZEPAM [Suspect]
  3. PROPIOMAZINE [Suspect]
  4. ZOPICLONE [Suspect]
  5. MIRTAZAPINE [Suspect]
  6. ETHANOL [Suspect]

REACTIONS (2)
  - Toxicity to various agents [None]
  - Accidental death [None]
